FAERS Safety Report 11603197 (Version 1)
Quarter: 2015Q4

REPORT INFORMATION
  Report Type: Spontaneous
  Country: US (occurrence: None)
  Receive Date: 20151005
  Receipt Date: 20151005
  Transmission Date: 20160304
  Serious: Yes (Hospitalization)
  Sender: FDA-Public Use
  Company Number: None

PATIENT
  Age: 59 Year
  Sex: Female
  Weight: 48.4 kg

DRUGS (5)
  1. LOTROZOLE [Concomitant]
  2. APIXABAN [Concomitant]
     Active Substance: APIXABAN
  3. EVEROLIMUS [Suspect]
     Active Substance: EVEROLIMUS
     Indication: OVARIAN CANCER
     Dosage: DAILY BID
     Route: 048
     Dates: start: 20150619
  4. LORAZEPAM. [Concomitant]
     Active Substance: LORAZEPAM
  5. VITAMIN B12 [Concomitant]
     Active Substance: CYANOCOBALAMIN

REACTIONS (2)
  - Infection [None]
  - Peripheral swelling [None]

NARRATIVE: CASE EVENT DATE: 20150930
